FAERS Safety Report 9374459 (Version 6)
Quarter: 2013Q4

REPORT INFORMATION
  Report Type: Spontaneous
  Country: US (occurrence: US)
  Receive Date: 20130628
  Receipt Date: 20131208
  Transmission Date: 20140711
  Serious: Yes (Other)
  Sender: FDA-Public Use
  Company Number: US-009507513-1306USA014052

PATIENT
  Age: 56 Year
  Sex: Female
  Weight: 59.41 kg

DRUGS (4)
  1. REBETOL [Suspect]
     Indication: HEPATITIS C
     Dosage: 4 PILLS/800 MG DAILY
     Route: 048
     Dates: start: 20130612, end: 2013
  2. REBETOL [Suspect]
     Dosage: 3 PILLS/600 MG DAILY
     Route: 048
     Dates: start: 2013
  3. PEGASYS [Suspect]
     Indication: HEPATITIS C
     Dosage: UNK
     Dates: start: 20130612
  4. VICTRELIS [Suspect]
     Indication: HEPATITIS C
     Dosage: UNK
     Route: 048
     Dates: start: 20130820

REACTIONS (14)
  - Chronic obstructive pulmonary disease [Unknown]
  - Urticaria [Unknown]
  - Nausea [Unknown]
  - Memory impairment [Unknown]
  - Pruritus [Not Recovered/Not Resolved]
  - Dizziness [Unknown]
  - Confusional state [Unknown]
  - Dizziness [Unknown]
  - Rash [Recovered/Resolved]
  - Cough [Unknown]
  - Dyspnoea [Unknown]
  - Nausea [Unknown]
  - Diarrhoea [Unknown]
  - Influenza [Unknown]
